FAERS Safety Report 17450512 (Version 3)
Quarter: 2020Q1

REPORT INFORMATION
  Report Type: Report from Study
  Country: US (occurrence: US)
  Receive Date: 20200224
  Receipt Date: 20200303
  Transmission Date: 20200409
  Serious: Yes (Hospitalization)
  Sender: FDA-Public Use
  Company Number: US-BAUSCH-BL-2020-005371

PATIENT
  Age: 60 Year
  Sex: Female

DRUGS (3)
  1. XIFAXAN [Suspect]
     Active Substance: RIFAXIMIN
     Indication: HEPATIC CIRRHOSIS
     Dosage: HAD BEEN USING THE PRODUCT FOR 6 MONTHS
     Route: 048
     Dates: end: 20200110
  2. METFORMIN [Concomitant]
     Active Substance: METFORMIN HYDROCHLORIDE
     Indication: PRODUCT USED FOR UNKNOWN INDICATION
     Route: 048
  3. INSULIN [Concomitant]
     Active Substance: INSULIN NOS
     Indication: PRODUCT USED FOR UNKNOWN INDICATION
     Route: 058

REACTIONS (5)
  - Cellulitis [Unknown]
  - Product distribution issue [Unknown]
  - Hospitalisation [Unknown]
  - Confusional state [Unknown]
  - Therapy cessation [Unknown]

NARRATIVE: CASE EVENT DATE: 2020
